FAERS Safety Report 8028481-5 (Version None)
Quarter: 2012Q1

REPORT INFORMATION
  Report Type: 
  Country: None (occurrence: None)
  Receive Date: 20120106
  Receipt Date: 20111229
  Transmission Date: 20120608
  Serious: Yes (Other)
  Sender: FDA-Public Use
  Company Number: US-ASTRAZENECA-2011SE16799

PATIENT
  Age: 55 Year
  Sex: Female
  Weight: 70.3 kg

DRUGS (3)
  1. SEROQUEL [Suspect]
     Indication: DEPRESSION
     Dosage: 2 TO 3 TABLETS OF 200 MG
     Route: 048
  2. SEROQUEL [Suspect]
     Indication: SLEEP DISORDER
     Dosage: 2 TO 3 TABLETS OF 200 MG
     Route: 048
  3. HYDROCODONE [Concomitant]
     Indication: PAIN
     Dosage: 10/500 MG EVERY DAY BEFORE LUNCH
     Route: 048

REACTIONS (5)
  - INSOMNIA [None]
  - METASTASES TO LYMPH NODES [None]
  - BREAST CANCER [None]
  - DRUG DOSE OMISSION [None]
  - OFF LABEL USE [None]
